FAERS Safety Report 4952617-3 (Version None)
Quarter: 2006Q1

REPORT INFORMATION
  Report Type: 
  Country: None (occurrence: None)
  Receive Date: 20060317
  Receipt Date: 20060308
  Transmission Date: 20060701
  Serious: Yes (Other)
  Sender: FDA-Public Use
  Company Number: HQWYE999616JUL03

PATIENT
  Age: 51 Year
  Sex: Male
  Weight: 98.2 kg

DRUGS (8)
  1. MYLOTARG [Suspect]
     Indication: ACUTE MYELOID LEUKAEMIA
     Dosage: 19 MG 1X PER 1 DAY, INTRAVENOUS ; 20 MG 1X PER 1 DAY, INTRAVENOUS
     Route: 042
     Dates: start: 20030624, end: 20030624
  2. MYLOTARG [Suspect]
     Indication: ACUTE MYELOID LEUKAEMIA
     Dosage: 19 MG 1X PER 1 DAY, INTRAVENOUS ; 20 MG 1X PER 1 DAY, INTRAVENOUS
     Route: 042
     Dates: start: 20030707, end: 20030707
  3. AMPHOTERICIN B [Concomitant]
  4. DIFLUCAN [Concomitant]
  5. PROTONIX [Concomitant]
  6. GANCICLOVIR(GANCICLOVIR) [Concomitant]
  7. CIPROFLOXACIN HCL [Concomitant]
  8. VANCOMYCIN [Concomitant]

REACTIONS (3)
  - HYPOTENSION [None]
  - INFUSION RELATED REACTION [None]
  - POSTOPERATIVE WOUND INFECTION [None]
